FAERS Safety Report 17242341 (Version 1)
Quarter: 2020Q1

REPORT INFORMATION
  Report Type: Spontaneous
  Country: DE (occurrence: DE)
  Receive Date: 20200107
  Receipt Date: 20200107
  Transmission Date: 20200409
  Serious: Yes (Death, Hospitalization, Other)
  Sender: FDA-Public Use
  Company Number: DE-SA-2019SA261400

PATIENT
  Age: 50 Year
  Sex: Female

DRUGS (1)
  1. ALDURAZYME [Suspect]
     Active Substance: LARONIDASE
     Dosage: 100 UG/ML, UNK
     Route: 065

REACTIONS (3)
  - Death [Fatal]
  - Unevaluable event [Unknown]
  - General physical health deterioration [Unknown]
